FAERS Safety Report 10312543 (Version 1)
Quarter: 2014Q3

REPORT INFORMATION
  Report Type: Spontaneous
  Country: US (occurrence: US)
  Receive Date: 20140718
  Receipt Date: 20140718
  Transmission Date: 20150326
  Serious: Yes (Other)
  Sender: FDA-Public Use
  Company Number: 2014SP002277

PATIENT
  Age: 4 Year
  Sex: Female
  Weight: 24.5 kg

DRUGS (2)
  1. DIPHENHYDRAMINE /00000402/ [Concomitant]
     Indication: PREMEDICATION
  2. VANCOMYCIN [Suspect]
     Active Substance: VANCOMYCIN
     Indication: STAPHYLOCOCCAL INFECTION
     Route: 042
     Dates: start: 20140401, end: 20140402

REACTIONS (3)
  - Urticaria [Recovered/Resolved]
  - Anaphylactoid reaction [Recovered/Resolved]
  - Swelling face [Recovered/Resolved]

NARRATIVE: CASE EVENT DATE: 20140401
